FAERS Safety Report 20506214 (Version 1)
Quarter: 2022Q1

REPORT INFORMATION
  Report Type: Spontaneous
  Country: US (occurrence: None)
  Receive Date: 20220222
  Receipt Date: 20220222
  Transmission Date: 20220423
  Serious: No
  Sender: FDA-Public Use
  Company Number: None

PATIENT
  Age: 69 Year
  Sex: Male

DRUGS (1)
  1. ABIRATERONE [Suspect]
     Active Substance: ABIRATERONE
     Dosage: 1,000MG DAILY ORAL?
     Route: 048
     Dates: start: 20200409

REACTIONS (4)
  - Thirst [None]
  - Vision blurred [None]
  - Pollakiuria [None]
  - Weight decreased [None]

NARRATIVE: CASE EVENT DATE: 20220222
